FAERS Safety Report 20393338 (Version 1)
Quarter: 2022Q1

REPORT INFORMATION
  Report Type: Spontaneous
  Country: BR (occurrence: BR)
  Receive Date: 20220128
  Receipt Date: 20220128
  Transmission Date: 20220423
  Serious: Yes (Disabling)
  Sender: FDA-Public Use
  Company Number: BR-TEVA-2018-BR-925579

PATIENT

DRUGS (4)
  1. ACTONEL [Suspect]
     Active Substance: RISEDRONATE SODIUM
     Indication: Osteoporosis
     Route: 048
     Dates: start: 201805
  2. MIFLASONE 200mg [Concomitant]
     Indication: Bronchiectasis
     Dosage: 2 DOSAGE FORMS DAILY;
     Route: 048
     Dates: start: 2013
  3. DULOXETINE HYDROCHLORIDE [Concomitant]
     Active Substance: DULOXETINE HYDROCHLORIDE
     Indication: Arthritis
     Dosage: 1 DOSAGE FORMS DAILY;
     Route: 048
     Dates: start: 2013
  4. DAMATER OSTEO [Concomitant]
     Indication: Osteoporosis
     Dosage: 2 DOSAGE FORMS DAILY;
     Route: 048
     Dates: start: 201805

REACTIONS (3)
  - Motor dysfunction [Unknown]
  - Pain in extremity [Not Recovered/Not Resolved]
  - Pain in extremity [Not Recovered/Not Resolved]

NARRATIVE: CASE EVENT DATE: 20180619
